FAERS Safety Report 18285395 (Version 2)
Quarter: 2020Q4

REPORT INFORMATION
  Report Type: Report from Study
  Country: US (occurrence: US)
  Receive Date: 20200918
  Receipt Date: 20201007
  Transmission Date: 20210113
  Serious: Yes (Hospitalization)
  Sender: FDA-Public Use
  Company Number: US-EISAI MEDICAL RESEARCH-EC-2020-070809

PATIENT
  Age: 70 Year
  Sex: Male
  Weight: 89 kg

DRUGS (26)
  1. LENVIMA [Suspect]
     Active Substance: LENVATINIB
     Indication: RENAL CANCER
     Route: 048
     Dates: start: 20200213, end: 202008
  2. BENZONATATE. [Concomitant]
     Active Substance: BENZONATATE
  3. PROBIOTIC [Concomitant]
     Active Substance: PROBIOTICS NOS
  4. CARVEDILOL. [Concomitant]
     Active Substance: CARVEDILOL
  5. PREDNISONE. [Concomitant]
     Active Substance: PREDNISONE
  6. CRESEMBA [Concomitant]
     Active Substance: ISAVUCONAZONIUM SULFATE
  7. MIRTAZAPINE. [Concomitant]
     Active Substance: MIRTAZAPINE
  8. OMEPRAZOLE-SODIUM BICARB [Concomitant]
  9. ONDANSETRON HCL [Concomitant]
     Active Substance: ONDANSETRON HYDROCHLORIDE
  10. IRON [Concomitant]
     Active Substance: IRON
     Dosage: 159 (45) MG
  11. FENTANYL. [Concomitant]
     Active Substance: FENTANYL
  12. HYDROMORPHONE [Concomitant]
     Active Substance: HYDROMORPHONE
  13. AMLODIPINE AND ATORVASTATIN [Concomitant]
     Active Substance: AMLODIPINE BESYLATE\ATORVASTATIN CALCIUM
  14. AFINITOR [Concomitant]
     Active Substance: EVEROLIMUS
  15. FLONASE ALLERGY RELIEF [Concomitant]
     Active Substance: FLUTICASONE PROPIONATE
  16. MAGNESIUM OXIDE. [Concomitant]
     Active Substance: MAGNESIUM OXIDE
  17. RITALIN [Concomitant]
     Active Substance: METHYLPHENIDATE HYDROCHLORIDE
  18. FUROSEMIDE. [Concomitant]
     Active Substance: FUROSEMIDE
  19. CYCLOSPORINE. [Concomitant]
     Active Substance: CYCLOSPORINE
  20. TRESIBA [Concomitant]
     Active Substance: INSULIN DEGLUDEC
  21. OZEMPIC [Concomitant]
     Active Substance: SEMAGLUTIDE
     Dosage: 0.25 OR .5 PEN INJECTOR
  22. AZATHIOPRINE. [Concomitant]
     Active Substance: AZATHIOPRINE
  23. REGLAN [Concomitant]
     Active Substance: METOCLOPRAMIDE HYDROCHLORIDE
  24. COUMADIN [Concomitant]
     Active Substance: WARFARIN SODIUM
  25. SIMETHICONE (DIMETHICONE) [Concomitant]
     Active Substance: DIMETHICONE
  26. LEVOTHYROXINE SODIUM. [Concomitant]
     Active Substance: LEVOTHYROXINE SODIUM

REACTIONS (12)
  - Sinusitis [Unknown]
  - Blood glucose increased [Unknown]
  - Pain in extremity [Unknown]
  - Epistaxis [Unknown]
  - Anticoagulation drug level increased [Unknown]
  - Arthralgia [Unknown]
  - Rash [Unknown]
  - Pneumonia fungal [Not Recovered/Not Resolved]
  - Nausea [Not Recovered/Not Resolved]
  - Dizziness [Not Recovered/Not Resolved]
  - Weight decreased [Not Recovered/Not Resolved]
  - Blood pressure increased [Unknown]

NARRATIVE: CASE EVENT DATE: 2020
